FAERS Safety Report 6382738-2 (Version None)
Quarter: 2009Q3

REPORT INFORMATION
  Report Type: 
  Country: None (occurrence: None)
  Receive Date: 20090930
  Receipt Date: 20090924
  Transmission Date: 20100115
  Serious: Yes (Hospitalization)
  Sender: FDA-Public Use
  Company Number: FR-MERCK-0909FRA00072

PATIENT
  Age: 66 Year
  Sex: Female
  Weight: 97 kg

DRUGS (6)
  1. JANUVIA [Suspect]
     Indication: TYPE 2 DIABETES MELLITUS
     Route: 048
     Dates: start: 20090324, end: 20090326
  2. METFORMIN HYDROCHLORIDE [Concomitant]
     Route: 065
  3. HYDROCHLOROTHIAZIDE AND VALSARTAN [Concomitant]
     Route: 065
  4. LERCANIDIPINE HYDROCHLORIDE [Concomitant]
     Route: 065
  5. ROSUVASTATIN CALCIUM [Concomitant]
     Route: 065
  6. ASPIRIN LYSINE [Concomitant]
     Route: 065

REACTIONS (4)
  - GAIT DISTURBANCE [None]
  - NAUSEA [None]
  - VERTIGO [None]
  - VISUAL IMPAIRMENT [None]
